FAERS Safety Report 7625465-3 (Version None)
Quarter: 2011Q3

REPORT INFORMATION
  Report Type: 
  Country: None (occurrence: None)
  Receive Date: 20110713
  Receipt Date: 20110628
  Transmission Date: 20111222
  Serious: Yes (Hospitalization)
  Sender: FDA-Public Use
  Company Number: 2011MA008146

PATIENT
  Age: 82 Year
  Sex: Female

DRUGS (3)
  1. AMINOPHYLLINE [Suspect]
  2. FORMOTEROL FUMARATE [Concomitant]
  3. VENTOLIN HFA [Concomitant]

REACTIONS (4)
  - HYPOTENSION [None]
  - CHRONIC RESPIRATORY FAILURE [None]
  - CONDITION AGGRAVATED [None]
  - ATRIAL TACHYCARDIA [None]
